FAERS Safety Report 4417063-X (Version None)
Quarter: 2004Q2

REPORT INFORMATION
  Report Type: 
  Country: None (occurrence: None)
  Receive Date: 20040629
  Receipt Date: 20031117
  Transmission Date: 20050107
  Serious: No
  Sender: FDA-Public Use
  Company Number: US057392

PATIENT
  Age: 77 Year
  Sex: Male

DRUGS (9)
  1. ARANESP [Suspect]
     Indication: RENAL FAILURE CHRONIC
     Dosage: EVERY 2 WEEKS
     Dates: start: 20031104
  2. SERTRALINE HYDROCHLORIDE [Concomitant]
  3. FENOFIBRATE [Concomitant]
  4. TOLTERODINE TARTRATE [Concomitant]
  5. ROFECOXIB [Concomitant]
  6. LEVOXYL [Concomitant]
  7. QUINIDINE HCL [Concomitant]
  8. PRIMIDONE [Concomitant]
  9. DOXAZOSIN MESYLATE [Concomitant]

REACTIONS (1)
  - BLOOD PRESSURE INCREASED [None]
